FAERS Safety Report 20036644 (Version 4)
Quarter: 2022Q2

REPORT INFORMATION
  Report Type: Report from Study
  Country: US (occurrence: US)
  Receive Date: 20211105
  Receipt Date: 20220429
  Transmission Date: 20220721
  Serious: No
  Sender: FDA-Public Use
  Company Number: US-NOVARTISTESTPH-NVSC2021US252121

PATIENT
  Age: 53 Year
  Sex: Female

DRUGS (4)
  1. PIQRAY [Suspect]
     Active Substance: ALPELISIB
     Indication: Breast cancer metastatic
     Dosage: UNK
     Route: 048
     Dates: start: 202005
  2. METFORMIN [Suspect]
     Active Substance: METFORMIN HYDROCHLORIDE
     Indication: Blood glucose
     Dosage: UNK
     Route: 065
     Dates: start: 2021
  3. FULVESTRANT [Suspect]
     Active Substance: FULVESTRANT
     Indication: Breast cancer metastatic
     Dosage: UNK
     Route: 065
  4. FASLODEX [Suspect]
     Active Substance: FULVESTRANT
     Indication: Breast cancer metastatic
     Dosage: UNK
     Route: 065

REACTIONS (6)
  - Blood glucose decreased [Recovered/Resolved]
  - COVID-19 [Recovering/Resolving]
  - Libido disorder [Unknown]
  - Rash [Recovered/Resolved]
  - Alopecia [Unknown]
  - Swelling face [Unknown]

NARRATIVE: CASE EVENT DATE: 20200501
